FAERS Safety Report 14871475 (Version 1)
Quarter: 2018Q2

REPORT INFORMATION
  Report Type: Report from Study
  Country: US (occurrence: US)
  Receive Date: 20180509
  Receipt Date: 20180509
  Transmission Date: 20180711
  Serious: Yes (Other)
  Sender: FDA-Public Use
  Company Number: US-MYLANLABS-2018M1030133

PATIENT
  Age: 6 Year
  Sex: Male

DRUGS (5)
  1. DIAZEPAM. [Suspect]
     Active Substance: DIAZEPAM
     Indication: STATUS EPILEPTICUS
     Dosage: TAPER STARTING AT 0.2 MG/KG/DAY DIVIDED BID AND DECREASED THE NUMBER OF ADMINISTRATIONS EVERY 2 DAYS
     Route: 048
  2. VALPROATE [Concomitant]
     Active Substance: VALPROIC ACID
     Indication: SEIZURE
     Route: 065
  3. LEVETIRACETAM. [Concomitant]
     Active Substance: LEVETIRACETAM
     Indication: SEIZURE
     Dosage: UNK
     Route: 065
  4. LEVETIRACETAM. [Concomitant]
     Active Substance: LEVETIRACETAM
     Dosage: AT THE AGE OF 6 YEARS AND 11 MONTHS: INCREASED DOSE
     Route: 065
  5. DIAZEPAM. [Suspect]
     Active Substance: DIAZEPAM
     Dosage: AT THE AGE OF 6 YEARS AND 11 MONTHS: TAPER STARTING AT 0.4 MG/KG/DAY DIVIDED BID AND DECREASED TH
     Route: 048

REACTIONS (2)
  - Nasal congestion [Recovered/Resolved]
  - Seizure [Recovered/Resolved]
